FAERS Safety Report 9324465 (Version 1)
Quarter: 2013Q2

REPORT INFORMATION
  Report Type: Report from Study
  Country: SE (occurrence: SE)
  Receive Date: 20130603
  Receipt Date: 20130603
  Transmission Date: 20140414
  Serious: Yes (Hospitalization)
  Sender: FDA-Public Use
  Company Number: SE-JNJFOC-20110308193

PATIENT
  Sex: Male
  Weight: 80 kg

DRUGS (6)
  1. INFLIXIMAB, RECOMBINANT [Suspect]
     Indication: CROHN^S DISEASE
     Route: 042
     Dates: start: 20101014
  2. INFLIXIMAB, RECOMBINANT [Suspect]
     Indication: CROHN^S DISEASE
     Route: 042
     Dates: start: 20100819
  3. PENTASA [Concomitant]
     Indication: CROHN^S DISEASE
     Dates: start: 20060618
  4. VITAMIN [Concomitant]
  5. BEHEPAN [Concomitant]
  6. CALCIUM/VIT D [Concomitant]

REACTIONS (1)
  - Subileus [Recovered/Resolved]
